FAERS Safety Report 9921469 (Version 1)
Quarter: 2014Q1

REPORT INFORMATION
  Report Type: Spontaneous
  Country: US (occurrence: None)
  Receive Date: 20140221
  Receipt Date: 20140221
  Transmission Date: 20141002
  Serious: Yes (Hospitalization)
  Sender: FDA-Public Use
  Company Number: None

PATIENT
  Age: 65 Year
  Sex: Male
  Weight: 77.2 kg

DRUGS (2)
  1. AZITHROMYCIN [Suspect]
     Indication: CHRONIC OBSTRUCTIVE PULMONARY DISEASE
     Route: 048
     Dates: start: 20140107, end: 20140219
  2. AZITHROMYCIN [Suspect]
     Indication: PROPHYLAXIS
     Route: 048
     Dates: start: 20140107, end: 20140219

REACTIONS (2)
  - Delirium [None]
  - Paranoia [None]
